FAERS Safety Report 6424559-8 (Version None)
Quarter: 2009Q4

REPORT INFORMATION
  Report Type: 
  Country: None (occurrence: None)
  Receive Date: 20091103
  Receipt Date: 20091019
  Transmission Date: 20100525
  Serious: Yes (Hospitalization, Other)
  Sender: FDA-Public Use
  Company Number: PHHY2009US45991

PATIENT
  Age: 38 Year
  Sex: Male

DRUGS (7)
  1. CLOZAPINE [Suspect]
     Indication: SCHIZOAFFECTIVE DISORDER
     Dosage: UNK
  2. VALPROATE SODIUM [Suspect]
  3. GABAPENTIN [Concomitant]
  4. RISPERIDONE [Concomitant]
  5. OLANZAPINE [Concomitant]
  6. LITHIUM [Concomitant]
  7. CITALOPRAM [Concomitant]

REACTIONS (11)
  - CONFUSIONAL STATE [None]
  - CONVULSION [None]
  - DISORIENTATION [None]
  - DYSPHEMIA [None]
  - HEAD INJURY [None]
  - HYPERAMMONAEMIA [None]
  - LETHARGY [None]
  - MYOCLONUS [None]
  - SPEECH DISORDER [None]
  - THOUGHT BLOCKING [None]
  - VISUAL IMPAIRMENT [None]
